FAERS Safety Report 4883068-8 (Version None)
Quarter: 2006Q1

REPORT INFORMATION
  Report Type: 
  Country: None (occurrence: None)
  Receive Date: 20060118
  Receipt Date: 20060106
  Transmission Date: 20060701
  Serious: Yes (Life-Threatening)
  Sender: FDA-Public Use
  Company Number: FR-BRISTOL-MYERS SQUIBB COMPANY-13249206

PATIENT
  Age: 66 Year
  Sex: Female

DRUGS (11)
  1. ENDOXAN [Suspect]
     Indication: MULTIPLE SCLEROSIS
     Route: 042
     Dates: start: 19890101, end: 19900101
  2. BETASERON [Suspect]
     Indication: MULTIPLE SCLEROSIS
     Route: 058
     Dates: start: 19991130
  3. OESCLIM [Suspect]
     Indication: MULTIPLE SCLEROSIS
     Route: 061
  4. ESTROGEL [Suspect]
     Indication: MULTIPLE SCLEROSIS
     Route: 061
  5. METHOTREXATE [Suspect]
     Indication: MULTIPLE SCLEROSIS
     Route: 048
     Dates: start: 19980101, end: 19990101
  6. SURGESTONE [Suspect]
     Indication: MULTIPLE SCLEROSIS
     Route: 048
  7. LUTENYL [Suspect]
  8. LIVIAL [Suspect]
  9. DANTRIUM [Concomitant]
  10. RIVOTRIL [Concomitant]
     Dates: start: 19970101
  11. NEURONTIN [Concomitant]
     Dates: start: 20000101

REACTIONS (2)
  - BREAST CANCER FEMALE [None]
  - TREATMENT RELATED SECONDARY MALIGNANCY [None]
